FAERS Safety Report 8918600 (Version 3)
Quarter: 2014Q2

REPORT INFORMATION
  Report Type: Report from Study
  Country: BR (occurrence: BR)
  Receive Date: 20121120
  Receipt Date: 20140605
  Transmission Date: 20141212
  Serious: Yes (Hospitalization, Other)
  Sender: FDA-Public Use
  Company Number: BR-ROCHE-699469

PATIENT
  Age: 51 Year
  Sex: Female
  Weight: 77 kg

DRUGS (16)
  1. RITUXIMAB [Suspect]
     Indication: RHEUMATOID ARTHRITIS
     Dosage: FORM: INFUSION
     Route: 042
     Dates: start: 20091125, end: 20091210
  2. ALENDRONATE SODIUM [Suspect]
     Indication: OSTEOPOROSIS PROPHYLAXIS
     Route: 065
     Dates: start: 201004, end: 201004
  3. ACTEMRA [Suspect]
     Indication: RHEUMATOID ARTHRITIS
     Dosage: MOST RECENT DOSE RECEIVED ON 01APR2014
     Route: 042
     Dates: start: 20120917
  4. DIPYRONE [Concomitant]
     Indication: PAIN
  5. OMEPRAZOLE [Concomitant]
     Route: 065
  6. FOLIC ACID [Concomitant]
  7. FLUOXETIN [Concomitant]
     Indication: OBESITY
     Route: 065
  8. LOSARTAN [Concomitant]
     Route: 065
  9. ACETAMINOPHEN [Concomitant]
  10. ADALIMUMAB [Concomitant]
     Route: 065
  11. ARADOIS H [Concomitant]
     Dosage: 50/12.5 MG
     Route: 065
  12. ZOLPIDEM [Concomitant]
     Route: 065
  13. PREDNISONE [Concomitant]
     Indication: RHEUMATOID ARTHRITIS
     Route: 048
     Dates: start: 2003
  14. METHOTREXATE [Concomitant]
     Indication: RHEUMATOID ARTHRITIS
     Route: 065
  15. HYDROCHLOROTHIAZIDE [Concomitant]
  16. ATORVASTATIN [Concomitant]
     Route: 065

REACTIONS (16)
  - Platelet count decreased [Recovered/Resolved]
  - Fall [Unknown]
  - Open fracture [Recovering/Resolving]
  - Headache [Recovered/Resolved]
  - Nausea [Recovered/Resolved]
  - Feeling cold [Recovered/Resolved]
  - Dyspnoea [Recovered/Resolved]
  - Dizziness [Recovered/Resolved]
  - Pain [Not Recovered/Not Resolved]
  - Malaise [Recovered/Resolved]
  - Nodule [Not Recovered/Not Resolved]
  - Vertigo [Recovered/Resolved]
  - Gait disturbance [Not Recovered/Not Resolved]
  - Nasopharyngitis [Recovered/Resolved]
  - Pruritus [Recovered/Resolved]
  - Influenza like illness [Unknown]
